FAERS Safety Report 17369250 (Version 1)
Quarter: 2020Q1

REPORT INFORMATION
  Report Type: Spontaneous
  Country: FR (occurrence: FR)
  Receive Date: 20200204
  Receipt Date: 20200204
  Transmission Date: 20200409
  Serious: Yes (Hospitalization)
  Sender: FDA-Public Use
  Company Number: FR-TEVA-2020-FR-1181165

PATIENT
  Age: 37 Year
  Sex: Female
  Weight: 57 kg

DRUGS (11)
  1. CLARITHROMYCINE [Suspect]
     Active Substance: CLARITHROMYCIN
     Indication: MINERAL SUPPLEMENTATION
     Dosage: 1000 MG
     Route: 048
     Dates: start: 20191212
  2. CHLORURE DE POTASSIUM [Concomitant]
     Active Substance: POTASSIUM CHLORIDE
     Indication: PAIN
     Dosage: 4 G
     Route: 048
     Dates: start: 20191126
  3. CALCIUM (CARBONATE DE) [Concomitant]
     Active Substance: CALCIUM CARBONATE
     Indication: INSOMNIA
     Dosage: 10 MG
     Route: 048
     Dates: start: 20191211
  4. ANSATIPINE 150 MG, GELULE [Interacting]
     Active Substance: RIFABUTIN
     Indication: VITAMIN SUPPLEMENTATION
     Dosage: 800 IU
     Route: 048
     Dates: end: 20191212
  5. PARACETAMOL [Concomitant]
     Active Substance: ACETAMINOPHEN
     Indication: MYCOBACTERIUM AVIUM COMPLEX INFECTION
     Dosage: 60 MG
     Route: 048
     Dates: start: 20191224
  6. BACTRIM [Concomitant]
     Active Substance: SULFAMETHOXAZOLE\TRIMETHOPRIM
     Indication: MYCOBACTERIUM AVIUM COMPLEX INFECTION
     Dosage: 1200 MG
     Route: 048
     Dates: start: 20191204, end: 20200103
  7. ZOLPIDEM [Concomitant]
     Active Substance: ZOLPIDEM TARTRATE
     Indication: TYPE 2 DIABETES MELLITUS
     Dosage: 2 MG
     Route: 048
     Dates: start: 20191220, end: 20200103
  8. CHOLECALCIFEROL [Concomitant]
     Active Substance: CHOLECALCIFEROL
     Indication: MINERAL SUPPLEMENTATION
     Dosage: 2 G
     Route: 048
     Dates: start: 20191212, end: 20200103
  9. ETHAMBUTOL (CHLORHYDRATE D) [Concomitant]
     Indication: MYCOBACTERIUM AVIUM COMPLEX INFECTION
     Dosage: 1000 MG
     Route: 048
     Dates: start: 20191204
  10. REPAGLINIDE ARROW 0,5 MG, COMPRIME [Concomitant]
     Indication: MYCOBACTERIUM AVIUM COMPLEX INFECTION
     Dosage: 1 G
     Route: 048
     Dates: start: 20191219
  11. CORTANCYL [Concomitant]
     Active Substance: PREDNISONE
     Indication: ANTIBIOTIC PROPHYLAXIS
     Dosage: 1 DF
     Route: 048
     Dates: start: 20191109

REACTIONS (2)
  - Uveitis [Recovering/Resolving]
  - Drug interaction [Unknown]

NARRATIVE: CASE EVENT DATE: 20200103
